FAERS Safety Report 14198493 (Version 1)
Quarter: 2017Q4

REPORT INFORMATION
  Report Type: Spontaneous
  Country: SI (occurrence: SI)
  Receive Date: 20171116
  Receipt Date: 20171116
  Transmission Date: 20180321
  Serious: No
  Sender: FDA-Public Use
  Company Number: None

PATIENT
  Age: 36 Year
  Sex: Male
  Weight: 95 kg

DRUGS (3)
  1. ELOCOM [Suspect]
     Active Substance: MOMETASONE FUROATE
     Indication: ECZEMA
  2. ELOCOM [Suspect]
     Active Substance: MOMETASONE FUROATE
     Indication: DERMATITIS ATOPIC
  3. ADVANTAN [Concomitant]
     Active Substance: METHYLPREDNISOLONE ACEPONATE

REACTIONS (3)
  - Product measured potency issue [None]
  - Condition aggravated [None]
  - Drug ineffective [None]
